FAERS Safety Report 7818724-2 (Version None)
Quarter: 2011Q4

REPORT INFORMATION
  Report Type: 
  Country: None (occurrence: None)
  Receive Date: 20111018
  Receipt Date: 20111006
  Transmission Date: 20120403
  Serious: No
  Sender: FDA-Public Use
  Company Number: US-BIOGENIDEC-2011BI032107

PATIENT
  Sex: Female

DRUGS (1)
  1. TYSABRI [Suspect]
     Indication: MULTIPLE SCLEROSIS
     Route: 042
     Dates: start: 20101027

REACTIONS (6)
  - RESTLESSNESS [None]
  - PAIN IN EXTREMITY [None]
  - ARTHRALGIA [None]
  - MUSCLE SPASMS [None]
  - MOBILITY DECREASED [None]
  - COCCYDYNIA [None]
